FAERS Safety Report 8422384-X (Version None)
Quarter: 2012Q2

REPORT INFORMATION
  Report Type: 
  Country: None (occurrence: None)
  Receive Date: 20120608
  Receipt Date: 20120601
  Transmission Date: 20120825
  Serious: Yes (Hospitalization)
  Sender: FDA-Public Use
  Company Number: IT-UCBSA-058728

PATIENT
  Age: 79 Year
  Sex: Female

DRUGS (3)
  1. CANDESARTAN CILEXETIL [Concomitant]
     Dosage: 32 MG-50 TABLETS
  2. NORVASC [Concomitant]
     Dosage: 10 MG-14 TABLETS
  3. MOEXIPRIL HYDROCHLORIDE [Suspect]
     Indication: HYPERTENSION
     Dosage: 15 MG ,DAILY DOSE:1 DF-14 TABLETS
     Route: 048
     Dates: start: 20120101, end: 20120524

REACTIONS (2)
  - HYPONATRAEMIA [None]
  - HYPOKALAEMIA [None]
